FAERS Safety Report 5648550-4 (Version None)
Quarter: 2008Q1

REPORT INFORMATION
  Report Type: 
  Country: None (occurrence: None)
  Receive Date: 20080303
  Receipt Date: 20080303
  Transmission Date: 20080703
  Serious: Yes (Hospitalization)
  Sender: FDA-Public Use
  Company Number: None

PATIENT
  Sex: Female
  Weight: 19 kg

DRUGS (5)
  1. PEG-L-ASPARAGINASE (K-H) [Suspect]
     Dosage: 1825 IU
  2. DEXAMETHASONE TAB [Suspect]
     Dosage: 224 MG
  3. DOXORUBICIN HYDROCHLORIDE [Suspect]
     Dosage: 58 MG
  4. METHOTREXATE [Suspect]
     Dosage: 12 MG
  5. VINCRISTINE SULFATE [Suspect]
     Dosage: 3.6 MG

REACTIONS (2)
  - ATRIAL SEPTAL DEFECT [None]
  - CEREBROVASCULAR ACCIDENT [None]
